FAERS Safety Report 17453401 (Version 2)
Quarter: 2020Q1

REPORT INFORMATION
  Report Type: Report from Study
  Country: US (occurrence: US)
  Receive Date: 20200224
  Receipt Date: 20200228
  Transmission Date: 20200409
  Serious: No
  Sender: FDA-Public Use
  Company Number: US-AMGEN INC.-USASL2020028432

PATIENT
  Age: 66 Year
  Sex: Female

DRUGS (3)
  1. AIMOVIG [Suspect]
     Active Substance: ERENUMAB-AOOE
     Dosage: 140 MILLIGRAM, QMO
     Route: 065
     Dates: start: 2018
  2. NORTRIPTYLINE [Concomitant]
     Active Substance: NORTRIPTYLINE
     Dosage: UNK
  3. AIMOVIG [Suspect]
     Active Substance: ERENUMAB-AOOE
     Indication: MIGRAINE WITHOUT AURA
     Dosage: UNK
     Route: 065
     Dates: start: 2018, end: 2018

REACTIONS (8)
  - Therapeutic response shortened [Unknown]
  - Resting tremor [Unknown]
  - Sleep apnoea syndrome [Unknown]
  - Abdominal pain [Unknown]
  - Bradykinesia [Unknown]
  - Muscle rigidity [Unknown]
  - Neck pain [Unknown]
  - Chronic obstructive pulmonary disease [Unknown]

NARRATIVE: CASE EVENT DATE: 20180920
